APPROVED DRUG PRODUCT: MICARDIS
Active Ingredient: TELMISARTAN
Strength: 80MG
Dosage Form/Route: TABLET;ORAL
Application: N020850 | Product #002
Applicant: BOEHRINGER INGELHEIM
Approved: Nov 10, 1998 | RLD: Yes | RS: No | Type: DISCN